FAERS Safety Report 21282066 (Version 1)
Quarter: 2022Q3

REPORT INFORMATION
  Report Type: Spontaneous
  Country: None (occurrence: US)
  Receive Date: 20220901
  Receipt Date: 20220901
  Transmission Date: 20221027
  Serious: No
  Sender: FDA-Public Use
  Company Number: US-ITALFARMACO SPA-2132466

PATIENT
  Age: 60 Year
  Sex: Male

DRUGS (9)
  1. TIGLUTIK [Suspect]
     Active Substance: RILUZOLE
     Indication: Amyotrophic lateral sclerosis
     Route: 048
     Dates: start: 20220627, end: 20220628
  2. BACLOFEN [Concomitant]
     Active Substance: BACLOFEN
  3. DULCOLAX LAXATIVE [Concomitant]
     Active Substance: BISACODYL
  4. FINASTERIDE [Concomitant]
     Active Substance: FINASTERIDE
  5. GABAPENTIN [Concomitant]
     Active Substance: GABAPENTIN
  6. GLYCOPYRROLATE [Concomitant]
     Active Substance: GLYCOPYRROLATE
  7. NICOTINAMIDE [Concomitant]
     Active Substance: NIACINAMIDE
  8. RADICAVA [Concomitant]
     Active Substance: EDARAVONE
  9. TAMSULOSIN HYDROCHLORIDE [Concomitant]
     Active Substance: TAMSULOSIN HYDROCHLORIDE

REACTIONS (2)
  - Dyspepsia [Unknown]
  - Product taste abnormal [Unknown]

NARRATIVE: CASE EVENT DATE: 20220628
